FAERS Safety Report 4360156-6 (Version None)
Quarter: 2004Q2

REPORT INFORMATION
  Report Type: 
  Country: None (occurrence: None)
  Receive Date: 20040519
  Receipt Date: 20031103
  Transmission Date: 20050107
  Serious: Yes (Other)
  Sender: FDA-Public Use
  Company Number: PHEH2003US10200

PATIENT
  Age: 66 Year
  Sex: Male

DRUGS (13)
  1. AREDIA [Suspect]
     Indication: MULTIPLE MYELOMA
  2. ZOMETA [Suspect]
     Indication: MULTIPLE MYELOMA
  3. NEURONTIN [Concomitant]
  4. ANTACID TAB [Concomitant]
  5. ACYCLOVIR [Concomitant]
  6. BACTRIM [Concomitant]
  7. TEQUIN [Concomitant]
  8. DIFLUCAN [Concomitant]
  9. DEXAMETHASONE [Concomitant]
  10. WARFARIN SODIUM [Concomitant]
  11. THALIDOMIDE [Concomitant]
  12. INVESTIGATIONAL DRUG [Concomitant]
  13. CHEMOTHERAPEUTICS,OTHER [Concomitant]

REACTIONS (7)
  - ACTINOMYCOSIS [None]
  - IMPAIRED HEALING [None]
  - OSTEOMYELITIS [None]
  - OSTEONECROSIS [None]
  - SEQUESTRECTOMY [None]
  - TOOTH EXTRACTION [None]
  - WOUND DEBRIDEMENT [None]
